FAERS Safety Report 6411660-8 (Version None)
Quarter: 2009Q4

REPORT INFORMATION
  Report Type: 
  Country: None (occurrence: None)
  Receive Date: 20091023
  Receipt Date: 20091013
  Transmission Date: 20100525
  Serious: Yes (Hospitalization)
  Sender: FDA-Public Use
  Company Number: CA-JNJFOC-20090903694

PATIENT
  Sex: Female
  Weight: 87 kg

DRUGS (2)
  1. REMICADE [Suspect]
     Dosage: LOADING DOSE
     Route: 042
     Dates: start: 20090708, end: 20090724
  2. REMICADE [Suspect]
     Indication: RHEUMATOID ARTHRITIS
     Dosage: LOADING DOSE
     Route: 042
     Dates: start: 20090708, end: 20090724

REACTIONS (3)
  - CHRONIC OBSTRUCTIVE PULMONARY DISEASE [None]
  - PNEUMONIA [None]
  - RASH [None]
